FAERS Safety Report 14174229 (Version 1)
Quarter: 2017Q4

REPORT INFORMATION
  Report Type: Spontaneous
  Country: AU (occurrence: AU)
  Receive Date: 20171109
  Receipt Date: 20171109
  Transmission Date: 20180321
  Serious: Yes (Other)
  Sender: FDA-Public Use
  Company Number: AU-TEVA-822048ISR

PATIENT
  Age: 39 Year
  Sex: Female

DRUGS (3)
  1. HYDROCHLOROTHIAZIDE TABLETS [Concomitant]
     Active Substance: HYDROCHLOROTHIAZIDE
     Route: 048
  2. MODAVIGIL [Suspect]
     Active Substance: MODAFINIL
     Dosage: 300 MILLIGRAM DAILY;
     Route: 048
     Dates: start: 201503
  3. MICARDIS [Concomitant]
     Active Substance: TELMISARTAN
     Indication: BLOOD PRESSURE MEASUREMENT

REACTIONS (6)
  - Dizziness [Unknown]
  - Palpitations [Unknown]
  - Stenosis [Unknown]
  - Implantable cardiac monitor insertion [Unknown]
  - Heart rate irregular [Unknown]
  - Cardiac disorder [Unknown]

NARRATIVE: CASE EVENT DATE: 2017
